FAERS Safety Report 9587260 (Version 1)
Quarter: 2013Q4

REPORT INFORMATION
  Report Type: Spontaneous
  Country: GB (occurrence: GB)
  Receive Date: 20131003
  Receipt Date: 20131003
  Transmission Date: 20140711
  Serious: Yes (Hospitalization)
  Sender: FDA-Public Use
  Company Number: GB-009507513-1310GBR000273

PATIENT
  Sex: Male

DRUGS (7)
  1. JANUVIA [Suspect]
     Route: 048
  2. LANSOPRAZOLE [Concomitant]
  3. MIRTAZAPINE [Concomitant]
  4. OLANZAPINE [Concomitant]
  5. VENLAFAXINE HYDROCHLORIDE [Concomitant]
  6. BISOPROLOL [Concomitant]
  7. PARACETAMOL [Concomitant]

REACTIONS (3)
  - Hospitalisation [Unknown]
  - Dysphagia [Unknown]
  - Wrong technique in drug usage process [Unknown]
